FAERS Safety Report 19891303 (Version 1)
Quarter: 2021Q3

REPORT INFORMATION
  Report Type: Spontaneous
  Country: US (occurrence: US)
  Receive Date: 20210928
  Receipt Date: 20210928
  Transmission Date: 20211014
  Serious: No
  Sender: FDA-Public Use
  Company Number: US-ELI_LILLY_AND_COMPANY-US202109011129

PATIENT
  Age: 61 Year
  Sex: Male

DRUGS (2)
  1. BASAGLAR [Suspect]
     Active Substance: INSULIN GLARGINE
     Indication: TYPE 2 DIABETES MELLITUS
     Dosage: 82 U, DAILY (NIGHTLY)
     Route: 058
     Dates: start: 202108
  2. BASAGLAR [Suspect]
     Active Substance: INSULIN GLARGINE
     Dosage: 82 U, DAILY (NIGHTLY)
     Route: 058

REACTIONS (1)
  - Nausea [Unknown]

NARRATIVE: CASE EVENT DATE: 202108
